FAERS Safety Report 8429116-X (Version None)
Quarter: 2012Q2

REPORT INFORMATION
  Report Type: 
  Country: None (occurrence: None)
  Receive Date: 20120612
  Receipt Date: 20120530
  Transmission Date: 20120825
  Serious: Yes (Hospitalization)
  Sender: FDA-Public Use
  Company Number: FR-JNJFOC-20120600411

PATIENT
  Age: 60 Year

DRUGS (2)
  1. METHOTREXATE [Concomitant]
     Route: 065
  2. INFLIXIMAB, RECOMBINANT [Suspect]
     Indication: MUSCULOSKELETAL PAIN
     Route: 042

REACTIONS (2)
  - SKIN MASS [None]
  - PYREXIA [None]
